FAERS Safety Report 8797763 (Version 2)
Quarter: 2013Q1

REPORT INFORMATION
  Report Type: Report from Study
  Country: CA (occurrence: CA)
  Receive Date: 20120919
  Receipt Date: 20130108
  Transmission Date: 20140127
  Serious: Yes (Hospitalization)
  Sender: FDA-Public Use
  Company Number: CA-ROCHE-1128851

PATIENT
  Age: 61 None
  Sex: Male
  Weight: 50 kg

DRUGS (10)
  1. ACTEMRA [Suspect]
     Indication: RHEUMATOID ARTHRITIS
     Route: 042
     Dates: start: 20110804
  2. ACTONEL [Concomitant]
  3. TECTA [Concomitant]
  4. METHOTREXATE [Concomitant]
  5. SIMVASTATIN [Concomitant]
  6. ARTHROTEC [Concomitant]
  7. DILANTIN [Concomitant]
  8. PAROXETINE [Concomitant]
  9. PREDNISONE [Concomitant]
  10. LASIX [Concomitant]

REACTIONS (3)
  - Pneumothorax [Not Recovered/Not Resolved]
  - Nasopharyngitis [Not Recovered/Not Resolved]
  - Body temperature increased [Not Recovered/Not Resolved]
